FAERS Safety Report 8835651 (Version 1)
Quarter: 2012Q4

REPORT INFORMATION
  Report Type: 
  Country: US (occurrence: US)
  Receive Date: 20121011
  Receipt Date: 20121011
  Transmission Date: 20130627
  Serious: No
  Sender: FDA-Public Use
  Company Number: US-ASTRAZENECA-2012SE75175

PATIENT
  Age: 71 Year
  Sex: Female
  Weight: 61.7 kg

DRUGS (3)
  1. SYMBICORT PMDI [Suspect]
     Indication: ASTHMA
     Dosage: Total daily doasge: 160/4.5, frequency: two times a day.
     Route: 055
     Dates: start: 20120924, end: 20120925
  2. AMLODIPINE [Concomitant]
     Indication: HYPERTENSION
  3. PREMARIN [Concomitant]
     Indication: HYPERHIDROSIS

REACTIONS (3)
  - Hyperhidrosis [Unknown]
  - Hypertension [Unknown]
  - Drug dose omission [Recovered/Resolved]
